FAERS Safety Report 17368834 (Version 1)
Quarter: 2020Q1

REPORT INFORMATION
  Report Type: Spontaneous
  Country: GB (occurrence: GB)
  Receive Date: 20200204
  Receipt Date: 20200204
  Transmission Date: 20200409
  Serious: Yes (Hospitalization)
  Sender: FDA-Public Use
  Company Number: GB-PURDUE-GBR-2020-0074754

PATIENT
  Age: 62 Year
  Sex: Male

DRUGS (2)
  1. SEVREDOL [Suspect]
     Active Substance: MORPHINE
     Indication: PAIN
     Dosage: 280 MG, DAILY (STRENGTH 20MG)
     Route: 065
     Dates: end: 2019
  2. MST CONTINUS [Suspect]
     Active Substance: MORPHINE SULFATE
     Indication: PRODUCT USED FOR UNKNOWN INDICATION
     Dosage: 70 MG, TWICE A DAY (STRENGTH 60MG AND 10MG)
     Route: 065
     Dates: start: 2019

REACTIONS (2)
  - Fall [Recovered/Resolved]
  - Drug ineffective [Unknown]

NARRATIVE: CASE EVENT DATE: 201911
